FAERS Safety Report 5737255-7 (Version None)
Quarter: 2008Q2

REPORT INFORMATION
  Report Type: 
  Country: None (occurrence: None)
  Receive Date: 20080512
  Receipt Date: 20080512
  Transmission Date: 20081010
  Serious: Yes (Other)
  Sender: FDA-Public Use
  Company Number: None

PATIENT
  Age: 71 Year
  Sex: Male
  Weight: 99.7913 kg

DRUGS (1)
  1. DIGITEK 0.125 MG MYLAN BERT [Suspect]
     Indication: ATRIAL FIBRILLATION
     Dosage: 1 DAILY OTHER
     Route: 050
     Dates: start: 20070801, end: 20080508

REACTIONS (8)
  - ATRIAL FIBRILLATION [None]
  - DIZZINESS [None]
  - FATIGUE [None]
  - HYPOTENSION [None]
  - INCORRECT DOSE ADMINISTERED [None]
  - PNEUMONIA [None]
  - SOMNOLENCE [None]
  - VISION BLURRED [None]
